FAERS Safety Report 7284943-X (Version None)
Quarter: 2011Q1

REPORT INFORMATION
  Report Type: 
  Country: None (occurrence: None)
  Receive Date: 20110210
  Receipt Date: 20100909
  Transmission Date: 20110831
  Serious: Yes (Other)
  Sender: FDA-Public Use
  Company Number: US-BAYER-201026212NA

PATIENT
  Sex: Female
  Weight: 45.805 kg

DRUGS (19)
  1. AZITHROMYCIN [Concomitant]
     Dosage: UNK
     Route: 048
     Dates: start: 20070101
  2. OMEPRAZOLE [Concomitant]
     Indication: GASTROOESOPHAGEAL REFLUX DISEASE
     Dosage: 20 MG, UNK
     Route: 048
     Dates: start: 20070101, end: 20090101
  3. OMEPRAZOLE [Concomitant]
     Indication: DYSPEPSIA
  4. ESCITALOPRAM [Concomitant]
     Dosage: 10 MG, UNK
     Route: 048
     Dates: start: 20080101
  5. CITALOPRAM [Concomitant]
     Indication: DEPRESSION
     Dosage: 20 MG, UNK
     Route: 048
     Dates: start: 20070101
  6. ACETAMINOPHEN AND HYDROCODONE BITARTRATE [Concomitant]
     Dosage: UNK
     Route: 048
     Dates: start: 20070101
  7. ONDANSERTRON HCL [Concomitant]
     Dosage: 8 MG, UNK
     Dates: start: 20070501
  8. IBUPROFEN [Concomitant]
     Dosage: UNK
     Route: 048
     Dates: start: 20070101
  9. LEXAPRO [Concomitant]
     Dosage: UNK
     Dates: start: 20080101
  10. YASMIN [Suspect]
     Indication: CONTRACEPTION
     Dosage: UNK
     Route: 048
     Dates: start: 20040101, end: 20070101
  11. YASMIN [Suspect]
     Indication: PREMENSTRUAL SYNDROME
  12. BENTYL [Concomitant]
     Indication: IRRITABLE BOWEL SYNDROME
     Dosage: 20 MG, UNK
     Route: 048
     Dates: start: 20070101, end: 20090101
  13. MOTRIN [Concomitant]
     Dosage: UNK
  14. METROGEL [Concomitant]
     Indication: VAGINAL DISORDER
     Dosage: UNK UNK, HS
     Route: 067
     Dates: start: 20080901
  15. PENICILLIN VK [Concomitant]
     Dosage: UNK
     Route: 048
     Dates: start: 20070101
  16. YAZ [Suspect]
     Indication: CONTRACEPTION
     Dosage: UNK
     Dates: start: 20070101, end: 20090201
  17. YAZ [Suspect]
     Indication: PREMENSTRUAL SYNDROME
  18. NSAID'S [Concomitant]
     Dosage: UNK UNK, PRN
  19. ASPIRIN [Concomitant]
     Dosage: 325 MG, QD
     Route: 048
     Dates: start: 20080101

REACTIONS (4)
  - PAIN [None]
  - CHOLELITHIASIS [None]
  - ABDOMINAL PAIN UPPER [None]
  - DYSPEPSIA [None]
